FAERS Safety Report 5062695-1 (Version None)
Quarter: 2006Q3

REPORT INFORMATION
  Report Type: 
  Country: None (occurrence: None)
  Receive Date: 20060724
  Receipt Date: 20060724
  Transmission Date: 20061208
  Serious: Yes (Hospitalization)
  Sender: FDA-Public Use
  Company Number: None

PATIENT
  Sex: Female
  Weight: 94.9 kg

DRUGS (2)
  1. CISPLATIN [Suspect]
     Dosage: 50 MG/M2 IV DAY 2
     Route: 042
  2. TAXOL [Suspect]
     Dosage: 135 MG/M2 IV OVER 24 HOURS AND
     Route: 042

REACTIONS (9)
  - BONE MARROW FAILURE [None]
  - DEHYDRATION [None]
  - DISEASE PROGRESSION [None]
  - HEPATIC FUNCTION ABNORMAL [None]
  - HEPATIC LESION [None]
  - HEPATOTOXICITY [None]
  - JAUNDICE [None]
  - PERFORMANCE STATUS DECREASED [None]
  - RENAL FAILURE ACUTE [None]
